FAERS Safety Report 5787104-6 (Version None)
Quarter: 2008Q2

REPORT INFORMATION
  Report Type: 
  Country: None (occurrence: None)
  Receive Date: 20080623
  Receipt Date: 20080623
  Transmission Date: 20081010
  Serious: Yes (Life-Threatening, Disabling)
  Sender: FDA-Public Use
  Company Number: None

PATIENT
  Age: 57 Year
  Sex: Female
  Weight: 63.5036 kg

DRUGS (3)
  1. ACTONEL [Suspect]
     Indication: OSTEOPOROSIS
     Dosage: 35 MG ONCE A WEEK PO
     Route: 048
     Dates: start: 20020601, end: 20070601
  2. COUMADIN [Concomitant]
  3. AMIODARONE HCL [Concomitant]

REACTIONS (1)
  - ATRIAL FIBRILLATION [None]
